FAERS Safety Report 16806085 (Version 1)
Quarter: 2019Q3

REPORT INFORMATION
  Report Type: Spontaneous
  Country: US (occurrence: US)
  Receive Date: 20190913
  Receipt Date: 20190913
  Transmission Date: 20191005
  Serious: No
  Sender: FDA-Public Use
  Company Number: US-PERRIGO-18US011094

PATIENT
  Age: 60 Year
  Sex: Female
  Weight: 54.42 kg

DRUGS (1)
  1. TRIAMCINOLONE ACETONIDE. [Suspect]
     Active Substance: TRIAMCINOLONE ACETONIDE
     Indication: VASOMOTOR RHINITIS
     Dosage: 110 MCG, EACH NOSTRIL, SINGLE
     Dates: start: 20180824, end: 20180824

REACTIONS (2)
  - Heart rate increased [Recovered/Resolved]
  - Off label use [Recovered/Resolved]

NARRATIVE: CASE EVENT DATE: 20180824
